FAERS Safety Report 7975138-2 (Version None)
Quarter: 2011Q4

REPORT INFORMATION
  Report Type: 
  Country: None (occurrence: None)
  Receive Date: 20111213
  Receipt Date: 20111102
  Transmission Date: 20120403
  Serious: No
  Sender: FDA-Public Use
  Company Number: US-AMGEN-USASP2011057386

PATIENT
  Sex: Male

DRUGS (3)
  1. HUMIRA [Concomitant]
     Dosage: UNK
  2. ENBREL [Suspect]
     Indication: PSORIATIC ARTHROPATHY
     Dosage: 25 MG, (ONCE IN 4 DAYS)
     Dates: start: 20010308
  3. ENBREL [Suspect]
     Indication: PSORIASIS

REACTIONS (2)
  - CELLULITIS [None]
  - PSORIASIS [None]
